FAERS Safety Report 8882733 (Version 1)
Quarter: 2012Q4

REPORT INFORMATION
  Report Type: 
  Country: BR (occurrence: BR)
  Receive Date: 20121102
  Receipt Date: 20121102
  Transmission Date: 20130627
  Serious: Yes (Other)
  Sender: FDA-Public Use
  Company Number: PHHY2012BR099724

PATIENT
  Sex: Female
  Weight: 60 kg

DRUGS (1)
  1. DIOVAN AMLO [Suspect]
     Indication: HYPERTENSION
     Dosage: 1 DF (80/5mg), daily
     Route: 048

REACTIONS (6)
  - Gait disturbance [Recovered/Resolved]
  - Fall [Recovered/Resolved]
  - Face injury [Recovered/Resolved]
  - Epistaxis [Recovered/Resolved]
  - Memory impairment [Not Recovered/Not Resolved]
  - Amnesia [Not Recovered/Not Resolved]
